FAERS Safety Report 19764229 (Version 1)
Quarter: 2021Q3

REPORT INFORMATION
  Report Type: Report from Study
  Country: DE (occurrence: DE)
  Receive Date: 20210830
  Receipt Date: 20210830
  Transmission Date: 20211014
  Serious: Yes (Hospitalization)
  Sender: FDA-Public Use
  Company Number: DE-MYLANLABS-2021M1056070

PATIENT
  Age: 79 Year
  Sex: Female
  Weight: 78 kg

DRUGS (5)
  1. KISQALI [Suspect]
     Active Substance: RIBOCICLIB
     Dosage: 600 QD, (21 DAYS THEN PAUSED FOR 7 DAYS )
     Route: 048
     Dates: start: 20180827, end: 20190630
  2. LETROZOLE. [Suspect]
     Active Substance: LETROZOLE
     Indication: BREAST CANCER METASTATIC
     Dosage: 2.5 MG, QD
     Route: 048
     Dates: start: 20180507, end: 20180814
  3. KISQALI [Suspect]
     Active Substance: RIBOCICLIB
     Indication: BREAST CANCER METASTATIC
     Dosage: 600 MG (21 DAYS THEN PAUSE FOR 7 DAYS)
     Route: 048
     Dates: start: 20180507, end: 20180814
  4. LETROZOLE. [Suspect]
     Active Substance: LETROZOLE
     Dosage: 2.5 MG, QD
     Route: 048
     Dates: start: 20180827
  5. KISQALI [Suspect]
     Active Substance: RIBOCICLIB
     Dosage: 400 MG QD, (21 DAYS THEN PAUSED FOR 7 DAYS )
     Route: 048
     Dates: start: 20190701

REACTIONS (5)
  - Pain [Unknown]
  - Femur fracture [Recovered/Resolved]
  - Femoral neck fracture [Recovered/Resolved]
  - Liver function test increased [Not Recovered/Not Resolved]
  - Fall [Unknown]

NARRATIVE: CASE EVENT DATE: 20180814
